FAERS Safety Report 26071589 (Version 1)
Quarter: 2025Q4

REPORT INFORMATION
  Report Type: Spontaneous
  Country: UA (occurrence: UA)
  Receive Date: 20251120
  Receipt Date: 20251120
  Transmission Date: 20260117
  Serious: Yes (Other)
  Sender: TEVA
  Company Number: UA-TEVA-VS-3392319

PATIENT
  Sex: Male

DRUGS (3)
  1. HYDROCHLOROTHIAZIDE\VALSARTAN [Suspect]
     Active Substance: HYDROCHLOROTHIAZIDE\VALSARTAN
     Indication: Hypertension
     Dosage: 160 MG/12.5 MG - 1 TABLET IN THE MORNING; 80 MG/12.5 MG - 1 TABLET IN THE EVENING
     Route: 065
  2. HYDROCHLOROTHIAZIDE\VALSARTAN [Suspect]
     Active Substance: HYDROCHLOROTHIAZIDE\VALSARTAN
     Indication: Hypertension
     Dosage: FORM STRENGTH: 160 MG/12.5 MG; 2 TABLETS OF 160 MG/12.5 MG PER DAY
     Route: 065
  3. HYDROCHLOROTHIAZIDE\VALSARTAN [Suspect]
     Active Substance: HYDROCHLOROTHIAZIDE\VALSARTAN
     Indication: Hypertension
     Dosage: FORM STRENGTH: 80 MG/12.5 MG,- 1 TABLET PER DAY, IN THE EVENING
     Route: 065

REACTIONS (1)
  - Drug dependence [Unknown]
